FAERS Safety Report 8607132-2 (Version None)
Quarter: 2012Q3

REPORT INFORMATION
  Report Type: 
  Country: None (occurrence: None)
  Receive Date: 20120821
  Receipt Date: 20120814
  Transmission Date: 20120928
  Serious: No
  Sender: FDA-Public Use
  Company Number: US-BIOGENIDEC-2012BI026759

PATIENT
  Sex: Female

DRUGS (1)
  1. TYSABRI [Suspect]
     Indication: MULTIPLE SCLEROSIS
     Route: 042
     Dates: start: 20120709

REACTIONS (6)
  - BACK PAIN [None]
  - ARTHRALGIA [None]
  - GROIN PAIN [None]
  - PAIN IN EXTREMITY [None]
  - HYPOAESTHESIA [None]
  - VISUAL IMPAIRMENT [None]
